FAERS Safety Report 24591145 (Version 4)
Quarter: 2024Q4

REPORT INFORMATION
  Report Type: Report from Study
  Country: CA (occurrence: CA)
  Receive Date: 20241107
  Receipt Date: 20241128
  Transmission Date: 20250114
  Serious: Yes (Other)
  Sender: CELLTRION
  Company Number: CA-CELLTRION INC.-2023CA024176

PATIENT

DRUGS (16)
  1. ADALIMUMAB-AATY [Suspect]
     Active Substance: ADALIMUMAB-AATY
     Indication: Psoriatic arthropathy
     Dosage: 40 MG, Q2WEEKS
     Route: 058
     Dates: start: 20231113
  2. ADALIMUMAB-AATY [Suspect]
     Active Substance: ADALIMUMAB-AATY
     Dosage: 40 MG, Q2WEEKS
     Route: 058
     Dates: start: 20231128
  3. ADALIMUMAB-AATY [Suspect]
     Active Substance: ADALIMUMAB-AATY
     Dosage: 40 MG, Q2WEEKS
     Route: 058
     Dates: start: 20240514
  4. ADALIMUMAB-AATY [Suspect]
     Active Substance: ADALIMUMAB-AATY
     Dosage: 40 MG, Q2WEEKS
     Route: 058
     Dates: start: 20241030
  5. FOLIC ACID [Concomitant]
     Active Substance: FOLIC ACID
     Dosage: SIX DAYS A WEEK (NOT ON DAY OF METHOTREXATE)
  6. ESCITALOPRAM [Concomitant]
     Active Substance: ESCITALOPRAM OXALATE
     Indication: Anxiety
     Dosage: ON THIS FOR PROBABLY 30 YEARS
  7. ESCITALOPRAM [Concomitant]
     Active Substance: ESCITALOPRAM OXALATE
     Indication: Depression
  8. PILOCARPINE [Concomitant]
     Active Substance: PILOCARPINE
     Indication: Dry mouth
  9. CARBIDOPA [Concomitant]
     Active Substance: CARBIDOPA
     Indication: Tremor
  10. CARBIDOPA [Concomitant]
     Active Substance: CARBIDOPA
     Indication: Parkinson^s disease
  11. FISH OIL [Concomitant]
     Active Substance: FISH OIL
     Indication: Dry eye
  12. CALCIUM [Concomitant]
     Active Substance: CALCIUM
     Dosage: NOW STOPPED
  13. CHOLECALCIFEROL [Concomitant]
     Active Substance: CHOLECALCIFEROL
  14. PROLIA [Concomitant]
     Active Substance: DENOSUMAB
  15. METHOTREXATE [Concomitant]
     Active Substance: METHOTREXATE
     Dosage: 8 TABLETS ONCE A WEEK
  16. NAPROXEN [Concomitant]
     Active Substance: NAPROXEN
     Indication: Pain
     Dosage: A COUPLE OF TIMES A WEEK

REACTIONS (13)
  - Carpal tunnel syndrome [Unknown]
  - Epistaxis [Unknown]
  - Eye discharge [Recovered/Resolved]
  - Oropharyngeal pain [Recovered/Resolved]
  - Productive cough [Recovering/Resolving]
  - Nasal congestion [Unknown]
  - Respiratory tract congestion [Unknown]
  - Dry eye [Recovered/Resolved]
  - Nasopharyngitis [Recovering/Resolving]
  - Blood pressure increased [Recovered/Resolved]
  - Product distribution issue [Unknown]
  - Therapy interrupted [Unknown]
  - Intentional dose omission [Unknown]

NARRATIVE: CASE EVENT DATE: 20231125
